FAERS Safety Report 9157171 (Version 1)
Quarter: 2013Q1

REPORT INFORMATION
  Report Type: Spontaneous
  Country: US (occurrence: None)
  Receive Date: 20130208
  Receipt Date: 20130208
  Transmission Date: 20140127
  Serious: Yes (Hospitalization)
  Sender: FDA-Public Use
  Company Number: USA/USA/13/0027677

PATIENT
  Age: 59 Year
  Sex: Male
  Weight: 76.2 kg

DRUGS (9)
  1. AMITIZA [Suspect]
  2. ADVAIR (SERETIDE) [Concomitant]
  3. LISINOPRIL (LISINOPRIL) [Concomitant]
  4. SIMVASTATIN (SIMVASTATIN) [Concomitant]
  5. CYCLOBENZAPRINE (CYCLOBENZAPRINE) [Concomitant]
  6. DOXAZOSIN (DOXAZOSIN) [Concomitant]
  7. AVODART (DUTASTERIDE) [Concomitant]
  8. PREVACID (LANSOPRAZOLE) [Concomitant]
  9. THEOPHYLLINE (THEIPHYLLINE) [Concomitant]

REACTIONS (12)
  - Chronic obstructive pulmonary disease [None]
  - Influenza [None]
  - Chest pain [None]
  - Leukopenia [None]
  - Haemoglobin decreased [None]
  - Aspartate aminotransferase increased [None]
  - Blood creatine phosphokinase increased [None]
  - Haematocrit decreased [None]
  - Red blood cell count decreased [None]
  - Blood glucose increased [None]
  - Blood albumin decreased [None]
  - Anion gap decreased [None]
